FAERS Safety Report 8809125 (Version 1)
Quarter: 2012Q4

REPORT INFORMATION
  Report Type: Spontaneous
  Country: US (occurrence: None)
  Receive Date: 20120921
  Receipt Date: 20120921
  Transmission Date: 20130627
  Serious: Yes (Other)
  Sender: FDA-Public Use
  Company Number: DSA_596282012

PATIENT
  Sex: Male

DRUGS (4)
  1. WELLBUTRIN [Suspect]
     Indication: PRODUCT USED FOR UNKNOWN INDICATION
  2. PAXIL [Suspect]
  3. DEPAKOTE [Suspect]
  4. RISPERDAL [Suspect]

REACTIONS (8)
  - Craniocerebral injury [None]
  - Hypertension [None]
  - Nervousness [None]
  - Fatigue [None]
  - Insomnia [None]
  - Psychological trauma [None]
  - Overdose [None]
  - Genitourinary operation [None]
